FAERS Safety Report 4770825-1 (Version None)
Quarter: 2005Q3

REPORT INFORMATION
  Report Type: 
  Country: None (occurrence: None)
  Receive Date: 20050915
  Receipt Date: 20050712
  Transmission Date: 20060218
  Serious: Yes (Other)
  Sender: FDA-Public Use
  Company Number: US-GLAXOSMITHKLINE-A0565919A

PATIENT
  Age: 27 Year
  Sex: Female
  Weight: 86.4 kg

DRUGS (4)
  1. LAMICTAL [Suspect]
     Indication: EPILEPSY
     Route: 048
     Dates: start: 20041020
  2. TEGRETOL [Concomitant]
  3. ZONEGRAN [Concomitant]
  4. ALBUTEROL [Concomitant]

REACTIONS (7)
  - BRONCHOSPASM [None]
  - CHEST DISCOMFORT [None]
  - CHEST PAIN [None]
  - CONVULSION [None]
  - DYSPNOEA [None]
  - URINARY RETENTION [None]
  - VOMITING [None]
